FAERS Safety Report 15434933 (Version 1)
Quarter: 2018Q3

REPORT INFORMATION
  Report Type: Spontaneous
  Country: IN (occurrence: IN)
  Receive Date: 20180927
  Receipt Date: 20180927
  Transmission Date: 20181010
  Serious: Yes (Hospitalization, Other)
  Sender: FDA-Public Use
  Company Number: IN-PURDUE-GBR-2018-0059501

PATIENT
  Age: 67 Year
  Sex: Female

DRUGS (4)
  1. TRAMADOL. [Suspect]
     Active Substance: TRAMADOL
     Indication: ABDOMINAL PAIN
     Dosage: 50 MG, TID
     Route: 065
  2. NON?PMN MORPHINE SULFATE [Suspect]
     Active Substance: MORPHINE SULFATE
     Indication: ABDOMINAL PAIN
     Dosage: 5 MG, Q4H
     Route: 048
  3. HYDROXYUREA. [Suspect]
     Active Substance: HYDROXYUREA
     Indication: PRODUCT USED FOR UNKNOWN INDICATION
     Dosage: UNK
     Route: 065
  4. PARACETAMOL [Suspect]
     Active Substance: ACETAMINOPHEN
     Indication: ABDOMINAL PAIN
     Dosage: 500 MG, UNK (FOUR TIMES A DAY)
     Route: 065

REACTIONS (7)
  - Vomiting [Recovered/Resolved]
  - Overdose [Recovered/Resolved]
  - Hypoglycaemic coma [Recovered/Resolved]
  - Urine output decreased [Recovered/Resolved]
  - Tumour lysis syndrome [Recovered/Resolved]
  - Uraemic encephalopathy [Recovered/Resolved]
  - Hypophagia [Recovered/Resolved]
